FAERS Safety Report 7896430-6 (Version None)
Quarter: 2011Q4

REPORT INFORMATION
  Report Type: 
  Country: None (occurrence: None)
  Receive Date: 20111106
  Receipt Date: 20110909
  Transmission Date: 20120403
  Serious: Yes (Other)
  Sender: FDA-Public Use
  Company Number: US-AMGEN-USASP2011029914

PATIENT
  Age: 62 Year
  Sex: Female

DRUGS (3)
  1. ENBREL [Suspect]
     Indication: ANKYLOSING SPONDYLITIS
     Dosage: 50 MG, QWK
     Dates: start: 20110101
  2. METHOTREXATE [Concomitant]
     Dosage: 15 MG, QWK
     Dates: start: 20101001
  3. ENBREL [Suspect]
     Indication: RHEUMATOID ARTHRITIS
     Dosage: 50 MG, QWK
     Dates: start: 20110401, end: 20110515

REACTIONS (14)
  - IMPAIRED HEALING [None]
  - INJECTION SITE PAIN [None]
  - STAPHYLOCOCCAL INFECTION [None]
  - JOINT SWELLING [None]
  - LOCAL SWELLING [None]
  - PAIN IN EXTREMITY [None]
  - RASH [None]
  - ARTHRALGIA [None]
  - BASAL CELL CARCINOMA [None]
  - BACK PAIN [None]
  - TUBERCULIN TEST POSITIVE [None]
  - GRANULOMA SKIN [None]
  - EPISTAXIS [None]
  - OEDEMA PERIPHERAL [None]
